FAERS Safety Report 4475501-0 (Version None)
Quarter: 2004Q4

REPORT INFORMATION
  Report Type: 
  Country: None (occurrence: None)
  Receive Date: 20041015
  Receipt Date: 20041006
  Transmission Date: 20050328
  Serious: Yes (Death)
  Sender: FDA-Public Use
  Company Number: US-MERCK-0410USA00838

PATIENT

DRUGS (1)
  1. INVANZ [Suspect]
     Route: 051

REACTIONS (2)
  - CONVULSION [None]
  - INFUSION RELATED REACTION [None]
